FAERS Safety Report 20986999 (Version 2)
Quarter: 2022Q2

REPORT INFORMATION
  Report Type: Spontaneous
  Country: US (occurrence: None)
  Receive Date: 20220621
  Receipt Date: 20220623
  Transmission Date: 20220721
  Serious: Yes (Death)
  Sender: FDA-Public Use
  Company Number: US-ROCHE-3121695

PATIENT
  Age: 55 Year
  Sex: Female

DRUGS (1)
  1. XOLAIR [Suspect]
     Active Substance: OMALIZUMAB
     Indication: Dermatitis
     Dosage: STRENGTH: 150MG/ML, DOSE: 150 MG/ML
     Route: 058
     Dates: start: 20220127

REACTIONS (1)
  - Death [Fatal]

NARRATIVE: CASE EVENT DATE: 20220209
